FAERS Safety Report 4864239-3 (Version None)
Quarter: 2005Q4

REPORT INFORMATION
  Report Type: 
  Country: None (occurrence: None)
  Receive Date: 20051222
  Receipt Date: 20051214
  Transmission Date: 20060501
  Serious: Yes (Other)
  Sender: FDA-Public Use
  Company Number: 2005SE07287

PATIENT
  Age: 65 Year
  Sex: Female

DRUGS (3)
  1. LUCEN [Suspect]
     Indication: GASTROOESOPHAGEAL REFLUX DISEASE
     Route: 048
     Dates: start: 20051114, end: 20051121
  2. APOMORPHINE HYDROCHLORIDE [Interacting]
     Indication: PARKINSON'S DISEASE
     Dosage: UNKNOWN DAILY DOSAGE
     Route: 042
  3. LEVODOPA [Concomitant]
     Indication: PARKINSON'S DISEASE
     Dosage: UNKOWN DAILY DOSAGE
     Route: 065

REACTIONS (2)
  - DRUG INTERACTION [None]
  - MUSCLE RIGIDITY [None]
